FAERS Safety Report 23519313 (Version 1)
Quarter: 2024Q1

REPORT INFORMATION
  Report Type: Spontaneous
  Country: US (occurrence: US)
  Receive Date: 20240213
  Receipt Date: 20240213
  Transmission Date: 20240410
  Serious: No
  Sender: FDA-Public Use
  Company Number: US-SA-SAC20240206000950

PATIENT
  Age: 42 Year
  Sex: Female

DRUGS (10)
  1. DUPIXENT [Suspect]
     Active Substance: DUPILUMAB
     Indication: Dermatitis atopic
     Dosage: 300 MG, QOW
     Route: 058
  2. AZELASTINE [Concomitant]
     Active Substance: AZELASTINE\AZELASTINE HYDROCHLORIDE
  3. FAMOTIDINE [Concomitant]
     Active Substance: FAMOTIDINE
  4. IBUPROFEN [Concomitant]
     Active Substance: IBUPROFEN
  5. MUPIROCIN [Concomitant]
     Active Substance: MUPIROCIN
  6. PROGESTERONE [Concomitant]
     Active Substance: PROGESTERONE
  7. PROTOPIC [Concomitant]
     Active Substance: TACROLIMUS
  8. TRANEXAMIC ACID [Concomitant]
     Active Substance: TRANEXAMIC ACID
  9. TRIAMCINOLONE [Concomitant]
     Active Substance: TRIAMCINOLONE
  10. DESOXIMETASONE [Concomitant]
     Active Substance: DESOXIMETASONE

REACTIONS (1)
  - Rash erythematous [Unknown]
